FAERS Safety Report 9498629 (Version 3)
Quarter: 2013Q4

REPORT INFORMATION
  Report Type: Spontaneous
  Country: US (occurrence: US)
  Receive Date: 20130904
  Receipt Date: 20131118
  Transmission Date: 20140711
  Serious: No
  Sender: FDA-Public Use
  Company Number: US-PFIZER INC-2013251821

PATIENT
  Age: 76 Year
  Sex: Male

DRUGS (1)
  1. INLYTA [Suspect]
     Indication: RENAL CANCER METASTATIC
     Dosage: 5 MG, 2X/DAY (TAKE 1 TABLET EVERY 12 HOURS)
     Dates: start: 201207, end: 20130830

REACTIONS (4)
  - Disease progression [Unknown]
  - Renal cancer metastatic [Unknown]
  - Fatigue [Unknown]
  - Abdominal discomfort [Unknown]
